FAERS Safety Report 5662147-1 (Version None)
Quarter: 2008Q1

REPORT INFORMATION
  Report Type: 
  Country: None (occurrence: None)
  Receive Date: 20080312
  Receipt Date: 20080311
  Transmission Date: 20080703
  Serious: Yes (Hospitalization)
  Sender: FDA-Public Use
  Company Number: US-BOEHRINGER INGELHEIM GMBH, GERMANY-2008-DE-01527GD

PATIENT
  Age: 2 Year
  Sex: Female

DRUGS (4)
  1. NAPROXEN [Suspect]
     Indication: JUVENILE ARTHRITIS
  2. METHOTREXATE [Suspect]
     Indication: JUVENILE ARTHRITIS
     Dosage: 7,5 MG/WEEK
     Route: 048
  3. CORTICOSTEROIDS [Suspect]
     Indication: JUVENILE ARTHRITIS
     Route: 048
  4. FOLIC ACID [Concomitant]

REACTIONS (8)
  - DRUG EFFECT DECREASED [None]
  - HEPATITIS [None]
  - HEPATOMEGALY [None]
  - HYPERAMMONAEMIA [None]
  - HYPOGLYCAEMIA [None]
  - LETHARGY [None]
  - RESPIRATORY DISORDER [None]
  - VOMITING [None]
